FAERS Safety Report 14598791 (Version 3)
Quarter: 2018Q2

REPORT INFORMATION
  Report Type: Report from Study
  Country: CR (occurrence: CR)
  Receive Date: 20180305
  Receipt Date: 20180517
  Transmission Date: 20180711
  Serious: Yes (Hospitalization, Other)
  Sender: FDA-Public Use
  Company Number: CR-BAYER-2018-009186

PATIENT
  Age: 57 Year
  Sex: Female

DRUGS (1)
  1. BETAFERON [Suspect]
     Active Substance: INTERFERON BETA-1B
     Indication: MULTIPLE SCLEROSIS
     Dosage: 1 ML, QOD
     Route: 058
     Dates: start: 20171023

REACTIONS (8)
  - Aphonia [Unknown]
  - Atrophy [None]
  - Urinary tract infection [None]
  - Condition aggravated [None]
  - Speech disorder [Not Recovered/Not Resolved]
  - Muscle spasticity [Recovering/Resolving]
  - Multiple sclerosis relapse [None]
  - Speech disorder [None]

NARRATIVE: CASE EVENT DATE: 20180110
